FAERS Safety Report 7524447-X (Version None)
Quarter: 2011Q2

REPORT INFORMATION
  Report Type: 
  Country: None (occurrence: None)
  Receive Date: 20110525
  Receipt Date: 20110510
  Transmission Date: 20111010
  Serious: Yes (Other)
  Sender: FDA-Public Use
  Company Number: 2011MA005755

PATIENT
  Age: 26 Year
  Sex: Female

DRUGS (1)
  1. PHENYTOIN [Suspect]
     Indication: GRAND MAL CONVULSION
     Dosage: IV
     Route: 042

REACTIONS (7)
  - SKIN ULCER [None]
  - PURPLE GLOVE SYNDROME [None]
  - BLISTER [None]
  - GRAND MAL CONVULSION [None]
  - THROMBOPHLEBITIS SUPERFICIAL [None]
  - INFUSION SITE PAIN [None]
  - INFUSION SITE SWELLING [None]
